FAERS Safety Report 8370443-2 (Version None)
Quarter: 2012Q2

REPORT INFORMATION
  Report Type: 
  Country: None (occurrence: None)
  Receive Date: 20120518
  Receipt Date: 20120503
  Transmission Date: 20120825
  Serious: No
  Sender: FDA-Public Use
  Company Number: US-ENDO PHARMACEUTICALS INC.-OPCR20120735

PATIENT
  Sex: Male

DRUGS (1)
  1. OPANA ER [Suspect]
     Indication: PAIN
     Dosage: 40 MG
     Route: 048
     Dates: start: 20120101

REACTIONS (2)
  - FOREIGN BODY [None]
  - MEDICATION RESIDUE [None]
